FAERS Safety Report 5122181-7 (Version None)
Quarter: 2006Q4

REPORT INFORMATION
  Report Type: 
  Country: None (occurrence: None)
  Receive Date: 20061006
  Receipt Date: 20060927
  Transmission Date: 20070319
  Serious: Yes (Death, Hospitalization)
  Sender: FDA-Public Use
  Company Number: BR-ABBOTT-06P-020-0345433-00

PATIENT
  Sex: Male

DRUGS (4)
  1. DEPAKENE [Suspect]
     Indication: TREMOR
     Dates: start: 20051001, end: 20060901
  2. AVONEX [Suspect]
     Indication: MULTIPLE SCLEROSIS
     Route: 030
     Dates: start: 20040101, end: 20051001
  3. METINON 60 MG [Concomitant]
     Indication: MULTIPLE SCLEROSIS
     Route: 048
  4. PREDNISONE TAB [Concomitant]
     Indication: MULTIPLE SCLEROSIS
     Route: 048

REACTIONS (9)
  - DRUG INEFFECTIVE [None]
  - FEELING COLD [None]
  - HYPERHIDROSIS [None]
  - INSOMNIA [None]
  - PNEUMONIA [None]
  - RENAL FAILURE [None]
  - SEPTIC SHOCK [None]
  - SWELLING [None]
  - TREMOR [None]
